FAERS Safety Report 8847617 (Version 1)
Quarter: 2012Q4

REPORT INFORMATION
  Report Type: 
  Country: GB (occurrence: GB)
  Receive Date: 20121018
  Receipt Date: 20121018
  Transmission Date: 20130627
  Serious: Yes (Other)
  Sender: FDA-Public Use
  Company Number: GB-ELI_LILLY_AND_COMPANY-GB201210003807

PATIENT
  Age: 65 Year
  Sex: Male
  Weight: 96 kg

DRUGS (7)
  1. BYDUREON [Suspect]
     Indication: DIABETES MELLITUS MANAGEMENT
     Dosage: 2 mg, UNK
     Route: 058
     Dates: start: 20120724
  2. ASPIRIN [Concomitant]
     Dosage: 75 mg, UNK
  3. ATORVASTATIN [Concomitant]
     Dosage: 20 mg, UNK
  4. BISOPROLOL FUMARATE [Concomitant]
     Dosage: 1.25 mg, UNK
  5. GLICLAZIDE [Concomitant]
     Dosage: 80 mg, bid
  6. METFORMIN [Concomitant]
     Dosage: 1 g, bid
  7. RAMIPRIL [Concomitant]
     Dosage: 5 mg, UNK

REACTIONS (2)
  - Dysphagia [Recovered/Resolved]
  - Gastrooesophageal reflux disease [Recovered/Resolved]
